FAERS Safety Report 18263196 (Version 1)
Quarter: 2020Q3

REPORT INFORMATION
  Report Type: Spontaneous
  Country: GB (occurrence: GB)
  Receive Date: 20200914
  Receipt Date: 20200914
  Transmission Date: 20201103
  Serious: Yes (Other)
  Sender: FDA-Public Use
  Company Number: GB-TEVA-2020-GB-1826441

PATIENT
  Age: 86 Year
  Sex: Male
  Weight: 78 kg

DRUGS (3)
  1. AMLODIPINE [Concomitant]
     Active Substance: AMLODIPINE BESYLATE
     Dosage: 10MG
     Dates: start: 20200811
  2. SIMVASTATIN. [Concomitant]
     Active Substance: SIMVASTATIN
     Dosage: 20 MILLIGRAM DAILY; TO BE TAKEN AT NIGHT
     Dates: start: 20200811
  3. DIAZEPAM. [Suspect]
     Active Substance: DIAZEPAM
     Dosage: 6MG
     Route: 065
     Dates: start: 20200811, end: 20200811

REACTIONS (1)
  - Anaphylactic reaction [Recovering/Resolving]

NARRATIVE: CASE EVENT DATE: 20200811
